FAERS Safety Report 9437526 (Version 2)
Quarter: 2013Q4

REPORT INFORMATION
  Report Type: Report from Study
  Country: ES (occurrence: ES)
  Receive Date: 20130802
  Receipt Date: 20131121
  Transmission Date: 20140711
  Serious: Yes (Hospitalization)
  Sender: FDA-Public Use
  Company Number: ES-ROCHE-1247801

PATIENT
  Age: 58 Year
  Sex: Male
  Weight: 75 kg

DRUGS (5)
  1. ERLOTINIB [Suspect]
     Indication: LUNG NEOPLASM MALIGNANT
     Dosage: LAST DOSE- 150 MG, RECEIVED ON 10/MAR/2013
     Route: 048
     Dates: start: 20121225
  2. BEVACIZUMAB [Suspect]
     Indication: LUNG NEOPLASM MALIGNANT
     Dosage: LAST DOSE- 570 MG, RECEIVED ON 21/FEB/2013
     Route: 042
     Dates: start: 20121221
  3. CARBOPLATIN [Suspect]
     Indication: LUNG NEOPLASM MALIGNANT
     Dosage: LAST DOSE- 890MG, RECEIVED ON 21/FEB/2013
     Route: 042
     Dates: start: 20121221
  4. PACLITAXEL [Suspect]
     Indication: LUNG NEOPLASM MALIGNANT
     Dosage: LAST DOSE- 270 MG, RECEIVED ON 21/FEB/2013
     Route: 042
     Dates: start: 20121221
  5. METFORMIN [Concomitant]
     Indication: DIABETES MELLITUS
     Dosage: DAILY DOSE- 2 G
     Route: 048
     Dates: start: 20130402

REACTIONS (3)
  - Tumour associated fever [Recovered/Resolved]
  - Hypercalcaemia [Recovered/Resolved]
  - Cancer pain [Recovered/Resolved]
